FAERS Safety Report 17517074 (Version 1)
Quarter: 2020Q1

REPORT INFORMATION
  Report Type: Spontaneous
  Country: US (occurrence: US)
  Receive Date: 20200307
  Receipt Date: 20200307
  Transmission Date: 20200409
  Serious: Yes (Other)
  Sender: FDA-Public Use
  Company Number: None

PATIENT
  Age: 67 Year
  Sex: Female
  Weight: 50.4 kg

DRUGS (6)
  1. PREMARIN .3MG [Concomitant]
  2. CLOPIDOGREL [Suspect]
     Active Substance: CLOPIDOGREL BISULFATE
     Indication: CEREBROVASCULAR ACCIDENT
     Dosage: ?          QUANTITY:30 TABLET(S);?
     Route: 048
     Dates: start: 20200305, end: 20200307
  3. VITAMIN D [Concomitant]
     Active Substance: VITAMIN D NOS
  4. ZINC. [Concomitant]
     Active Substance: ZINC
  5. MAGNESIUM [Concomitant]
     Active Substance: MAGNESIUM
  6. WOBENZYME [Concomitant]

REACTIONS (10)
  - Paraesthesia [None]
  - Nausea [None]
  - Dizziness [None]
  - Transient ischaemic attack [None]
  - Feeding disorder [None]
  - Heart rate irregular [None]
  - Hypoaesthesia [None]
  - Headache [None]
  - Chest pain [None]
  - Fatigue [None]

NARRATIVE: CASE EVENT DATE: 20200306
